FAERS Safety Report 6195287-1 (Version None)
Quarter: 2009Q2

REPORT INFORMATION
  Report Type: 
  Country: None (occurrence: None)
  Receive Date: 20090515
  Receipt Date: 20090512
  Transmission Date: 20091009
  Serious: Yes (Hospitalization)
  Sender: FDA-Public Use
  Company Number: 1000006200

PATIENT
  Age: 70 Year
  Sex: Female

DRUGS (3)
  1. MONUROL [Suspect]
     Indication: URINARY TRACT INFECTION
     Dosage: (3 GM, ONCE), ORAL
     Route: 048
     Dates: start: 20090505, end: 20090505
  2. DIOVAN [Concomitant]
  3. TOPROL-XL [Concomitant]

REACTIONS (4)
  - ARTERIAL DISORDER [None]
  - CHEST PAIN [None]
  - DRUG INTERACTION [None]
  - HYPOAESTHESIA [None]
